FAERS Safety Report 17197368 (Version 1)
Quarter: 2019Q4

REPORT INFORMATION
  Report Type: Spontaneous
  Country: US (occurrence: US)
  Receive Date: 20191224
  Receipt Date: 20191224
  Transmission Date: 20200122
  Serious: Yes (Death, Hospitalization)
  Sender: FDA-Public Use
  Company Number: US-TEVA-2019-US-1157583

PATIENT
  Age: 35 Year
  Sex: Female

DRUGS (4)
  1. COCAINE [Suspect]
     Active Substance: COCAINE
     Route: 048
  2. COCAINE [Suspect]
     Active Substance: COCAINE
     Route: 067
  3. FENTANYL. [Suspect]
     Active Substance: FENTANYL
     Route: 065
  4. MORPHINE SULFATE. [Suspect]
     Active Substance: MORPHINE SULFATE
     Route: 065

REACTIONS (11)
  - Acute myocardial infarction [Unknown]
  - Ejection fraction decreased [Fatal]
  - Completed suicide [Fatal]
  - Toxicity to various agents [Fatal]
  - Unresponsive to stimuli [Unknown]
  - Torsade de pointes [Unknown]
  - Seizure [Unknown]
  - Cardiac arrest [Unknown]
  - Intentional overdose [Fatal]
  - Pulseless electrical activity [Unknown]
  - Pupil fixed [Unknown]
